FAERS Safety Report 5027150-3 (Version None)
Quarter: 2006Q2

REPORT INFORMATION
  Report Type: 
  Country: None (occurrence: None)
  Receive Date: 20060501
  Receipt Date: 20051229
  Transmission Date: 20061013
  Serious: No
  Sender: FDA-Public Use
  Company Number: 2006PV007801

PATIENT
  Sex: Male

DRUGS (1)
  1. SYMLIN INJECTION (0.6 MG/ML) [Suspect]
     Dosage: SC
     Route: 058
     Dates: start: 20050101

REACTIONS (1)
  - OEDEMA [None]
